FAERS Safety Report 4447954-5 (Version None)
Quarter: 2004Q3

REPORT INFORMATION
  Report Type: 
  Country: None (occurrence: None)
  Receive Date: 20040909
  Receipt Date: 20040909
  Transmission Date: 20050211
  Serious: Yes (Life-Threatening)
  Sender: FDA-Public Use
  Company Number: None

PATIENT
  Age: 81 Year
  Sex: Female
  Weight: 59 kg

DRUGS (5)
  1. LOVASTATIN [Suspect]
     Indication: DYSLIPIDAEMIA
     Dosage: 20 MG PO QD/ PRIOR TO ADMINISTRATION
     Route: 048
  2. FERROUS SULFATE TAB [Concomitant]
  3. HUMAN INSULIN [Concomitant]
  4. CARVEDILOL [Concomitant]
  5. LOVASTATIN [Concomitant]

REACTIONS (1)
  - RHABDOMYOLYSIS [None]
